FAERS Safety Report 9744433 (Version 1)
Quarter: 2013Q4

REPORT INFORMATION
  Report Type: Spontaneous
  Country: US (occurrence: US)
  Receive Date: 20131210
  Receipt Date: 20131210
  Transmission Date: 20140711
  Serious: Yes (Other)
  Sender: FDA-Public Use
  Company Number: US-FRI-1000051971

PATIENT
  Age: 32 Year
  Sex: Female

DRUGS (5)
  1. VIIBRYD [Suspect]
  2. CYMBALTA [Concomitant]
  3. BENZODIAZEPINE NOS [Concomitant]
  4. ADDERALL [Concomitant]
  5. SEROQUEL [Concomitant]

REACTIONS (2)
  - Convulsion [Recovered/Resolved]
  - Insomnia [Not Recovered/Not Resolved]
